FAERS Safety Report 13649498 (Version 2)
Quarter: 2017Q2

REPORT INFORMATION
  Report Type: Report from Study
  Country: CA (occurrence: CA)
  Receive Date: 20170614
  Receipt Date: 20170629
  Transmission Date: 20170830
  Serious: Yes (Hospitalization, Other)
  Sender: FDA-Public Use
  Company Number: CA-AMGEN-CANSL2017086819

PATIENT
  Age: 64 Year
  Sex: Male
  Weight: 94 kg

DRUGS (6)
  1. REPATHA [Suspect]
     Active Substance: EVOLOCUMAB
     Indication: ARTERIOSCLEROSIS
     Dosage: 140 MG/ML, UNK
     Route: 065
     Dates: start: 20161021, end: 20170516
  2. AMLODIPINE [Concomitant]
     Active Substance: AMLODIPINE BESYLATE
     Dosage: 5 MG, UNK
  3. METOPROLOL. [Concomitant]
     Active Substance: METOPROLOL
     Dosage: 100 MG, UNK
  4. BRILINTA [Concomitant]
     Active Substance: TICAGRELOR
     Dosage: 90 MG, UNK
  5. COVERSYL [Concomitant]
     Active Substance: PERINDOPRIL
     Dosage: 4 MG, UNK
  6. SIMVASTATINE [Concomitant]
     Active Substance: SIMVASTATIN
     Dosage: 40 MG, UNK

REACTIONS (4)
  - Diarrhoea haemorrhagic [Unknown]
  - Hepatocellular carcinoma [Recovered/Resolved]
  - Hepatic steatosis [Unknown]
  - Gastric polyps [Unknown]

NARRATIVE: CASE EVENT DATE: 201612
